FAERS Safety Report 19618763 (Version 2)
Quarter: 2022Q1

REPORT INFORMATION
  Report Type: Spontaneous
  Country: US (occurrence: None)
  Receive Date: 20210727
  Receipt Date: 20220221
  Transmission Date: 20220424
  Serious: Yes (Other)
  Sender: FDA-Public Use
  Company Number: US-ROCHE-2761744

PATIENT
  Sex: Female

DRUGS (5)
  1. XELODA [Suspect]
     Active Substance: CAPECITABINE
     Indication: Product used for unknown indication
     Route: 048
     Dates: start: 202008
  2. TUKYSA [Suspect]
     Active Substance: TUCATINIB
     Indication: Breast cancer metastatic
     Route: 065
     Dates: start: 202008
  3. TUKYSA [Suspect]
     Active Substance: TUCATINIB
     Route: 065
  4. HERCEPTIN [Suspect]
     Active Substance: TRASTUZUMAB
     Indication: Product used for unknown indication
     Route: 065
     Dates: start: 202008
  5. CEFDINIR [Concomitant]
     Active Substance: CEFDINIR

REACTIONS (14)
  - Metastases to central nervous system [Unknown]
  - Renal impairment [Unknown]
  - Eructation [Unknown]
  - Diarrhoea [Unknown]
  - Palmar-plantar erythrodysaesthesia syndrome [Unknown]
  - Gastrooesophageal reflux disease [Unknown]
  - Anaemia [Unknown]
  - Neuropathy peripheral [Unknown]
  - Cognitive disorder [Unknown]
  - Fatigue [Recovered/Resolved]
  - Hepatic function abnormal [Unknown]
  - Nasopharyngitis [Unknown]
  - Muscle spasms [Unknown]
  - Musculoskeletal disorder [Unknown]
